FAERS Safety Report 20098913 (Version 1)
Quarter: 2021Q4

REPORT INFORMATION
  Report Type: Spontaneous
  Country: US (occurrence: None)
  Receive Date: 20211121
  Receipt Date: 20211121
  Transmission Date: 20220303
  Serious: No
  Sender: FDA-Public Use
  Company Number: None

PATIENT

DRUGS (2)
  1. CLOTRIMAZOLE [Suspect]
     Active Substance: CLOTRIMAZOLE
     Indication: Product commingling
     Dosage: OTHER STRENGTH : 1% ;?
     Route: 061
  2. CLOBETASOL PROPIONATE [Suspect]
     Active Substance: CLOBETASOL PROPIONATE
     Dosage: OTHER STRENGTH : 0.05%;?
     Route: 061

REACTIONS (3)
  - Product dispensing error [None]
  - Product commingling [None]
  - Wrong product administered [None]
